FAERS Safety Report 8462065-X (Version None)
Quarter: 2012Q2

REPORT INFORMATION
  Report Type: 
  Country: None (occurrence: None)
  Receive Date: 20120625
  Receipt Date: 20120618
  Transmission Date: 20120825
  Serious: Yes (Other)
  Sender: FDA-Public Use
  Company Number: US-BAYER-2012-060764

PATIENT
  Age: 21 Year
  Sex: Female

DRUGS (4)
  1. YAZ [Suspect]
     Dosage: UNK
     Dates: start: 20101001, end: 20101201
  2. DROSPIRENONE AND ETHINYL ESTRADIOL [Suspect]
     Dosage: UNK
     Dates: start: 20110101, end: 20110301
  3. DROSPIRENONE AND ETHINYL ESTRADIOL [Suspect]
     Dosage: UNK
     Dates: start: 20110101, end: 20110301
  4. YAZ [Suspect]
     Dosage: UNK
     Dates: start: 20101001, end: 20101201

REACTIONS (2)
  - INJURY [None]
  - DEEP VEIN THROMBOSIS [None]
